FAERS Safety Report 24421991 (Version 1)
Quarter: 2024Q4

REPORT INFORMATION
  Report Type: Spontaneous
  Country: US (occurrence: US)
  Receive Date: 20241010
  Receipt Date: 20241010
  Transmission Date: 20250115
  Serious: Yes (Life-Threatening, Hospitalization)
  Sender: PROCTER AND GAMBLE
  Company Number: US-MLMSERVICE-20240923-PI203619-00029-1

PATIENT
  Age: 61 Year
  Sex: Male

DRUGS (2)
  1. ACETAMINOPHEN [Suspect]
     Active Substance: ACETAMINOPHEN
     Dosage: PATIENT^S FAMILY CONFIRMED FINDING AT LEAST ONE EMPTY BOTTLE OF ACETAMINOPHEN IN THE PATIENT^S CAR
     Route: 048
  2. ETHYLENE GLYCOL [Suspect]
     Active Substance: ETHYLENE GLYCOL
     Dosage: UNK
     Route: 048

REACTIONS (15)
  - Analgesic drug level increased [Unknown]
  - Respiratory distress [Not Recovered/Not Resolved]
  - Toxicity to various agents [Recovering/Resolving]
  - Mental status changes [Recovering/Resolving]
  - Hypoxia [Recovered/Resolved]
  - Acute kidney injury [Recovering/Resolving]
  - Hyperosmolar state [Recovered/Resolved]
  - Metabolic acidosis [Recovered/Resolved]
  - Fall [Unknown]
  - Dysarthria [Unknown]
  - Chest discomfort [Unknown]
  - Osmolar gap increased [Recovered/Resolved]
  - Alcohol poisoning [Unknown]
  - Confusional state [Unknown]
  - Labelled drug-food interaction medication error [Unknown]
